FAERS Safety Report 5821429-0 (Version None)
Quarter: 2008Q3

REPORT INFORMATION
  Report Type: 
  Country: None (occurrence: None)
  Receive Date: 20080724
  Receipt Date: 20080717
  Transmission Date: 20090109
  Serious: Yes (Congenital Anomaly)
  Sender: FDA-Public Use
  Company Number: A0686002A

PATIENT
  Sex: Female
  Weight: 3 kg

DRUGS (3)
  1. PAXIL [Suspect]
     Indication: ANXIETY
  2. TYLENOL [Concomitant]
  3. VITAMIN TAB [Concomitant]

REACTIONS (11)
  - ABNORMAL BEHAVIOUR [None]
  - AORTIC STENOSIS [None]
  - AORTIC VALVE INCOMPETENCE [None]
  - ATRIAL SEPTAL DEFECT [None]
  - ATTENTION DEFICIT/HYPERACTIVITY DISORDER [None]
  - CARDIAC MURMUR [None]
  - CHEST PAIN [None]
  - DRUG EXPOSURE DURING PREGNANCY [None]
  - LEFT VENTRICULAR HYPERTROPHY [None]
  - PULMONARY VALVE STENOSIS [None]
  - RESPIRATORY DISTRESS [None]
